FAERS Safety Report 18746238 (Version 1)
Quarter: 2021Q1

REPORT INFORMATION
  Report Type: Spontaneous
  Country: US (occurrence: US)
  Receive Date: 20210114
  Receipt Date: 20210114
  Transmission Date: 20210419
  Serious: Yes (Hospitalization)
  Sender: FDA-Public Use
  Company Number: None

PATIENT
  Age: 80 Year
  Sex: Female

DRUGS (1)
  1. IBRANCE [Suspect]
     Active Substance: PALBOCICLIB
     Indication: BREAST CANCER
     Route: 048
     Dates: start: 20190110, end: 20210109

REACTIONS (6)
  - Therapy cessation [None]
  - Dyspnoea [None]
  - Fatigue [None]
  - Dizziness [None]
  - Mastication disorder [None]
  - Heart rate increased [None]

NARRATIVE: CASE EVENT DATE: 20210107
